FAERS Safety Report 26127628 (Version 1)
Quarter: 2025Q4

REPORT INFORMATION
  Report Type: Spontaneous
  Country: US (occurrence: US)
  Receive Date: 20251206
  Receipt Date: 20251206
  Transmission Date: 20260117
  Serious: No
  Sender: SANDOZ
  Company Number: US-SANDOZ-SDZ2025US091091

PATIENT
  Sex: Female

DRUGS (1)
  1. ALBUTEROL SULFATE [Suspect]
     Active Substance: ALBUTEROL SULFATE
     Indication: Chronic obstructive pulmonary disease
     Dosage: STRENGTH: 90MCG
     Route: 065

REACTIONS (2)
  - Drug dose omission by device [Unknown]
  - Device malfunction [Unknown]

NARRATIVE: CASE EVENT DATE: 20251126
